FAERS Safety Report 21793243 (Version 2)
Quarter: 2023Q1

REPORT INFORMATION
  Report Type: Report from Study
  Country: DE (occurrence: None)
  Receive Date: 20221229
  Receipt Date: 20230123
  Transmission Date: 20230418
  Serious: Yes (Hospitalization, Other)
  Sender: FDA-Public Use
  Company Number: 2022A388555

PATIENT
  Age: 52 Year
  Sex: Female
  Weight: 56 kg

DRUGS (6)
  1. DURVALUMAB [Suspect]
     Active Substance: DURVALUMAB
     Indication: Adenocarcinoma
     Route: 042
     Dates: start: 20220512
  2. DURVALUMAB [Suspect]
     Active Substance: DURVALUMAB
     Indication: Adenocarcinoma
     Route: 042
     Dates: start: 20220609, end: 20220630
  3. LENALIDOMIDE [Suspect]
     Active Substance: LENALIDOMIDE
     Indication: Adenocarcinoma
     Dosage: 10 MG/KG
     Route: 065
     Dates: start: 20220512, end: 20220629
  4. AZACITIDINE [Suspect]
     Active Substance: AZACITIDINE
     Indication: Adenocarcinoma
     Dosage: 0.52 MG/M2
     Route: 058
     Dates: start: 20220117, end: 20220225
  5. PACLITAXEL [Suspect]
     Active Substance: PACLITAXEL
     Indication: Adenocarcinoma
     Dosage: 1.60 MG/M2
     Route: 042
     Dates: start: 20220125, end: 20220301
  6. GEMCITABINE [Suspect]
     Active Substance: GEMCITABINE
     Indication: Adenocarcinoma
     Dosage: 12.83 MG/M2
     Route: 042
     Dates: start: 20220125, end: 20220301

REACTIONS (2)
  - Escherichia sepsis [Recovered/Resolved]
  - Pyrexia [Recovered/Resolved]

NARRATIVE: CASE EVENT DATE: 20220913
